FAERS Safety Report 23635431 (Version 3)
Quarter: 2024Q1

REPORT INFORMATION
  Report Type: Spontaneous
  Country: JP (occurrence: JP)
  Receive Date: 20240315
  Receipt Date: 20240328
  Transmission Date: 20240409
  Serious: Yes (Other)
  Sender: FDA-Public Use
  Company Number: JP-BRISTOL-MYERS SQUIBB COMPANY-2024-039397

PATIENT
  Age: 84 Year
  Sex: Male

DRUGS (2)
  1. ORENCIA [Suspect]
     Active Substance: ABATACEPT
     Indication: Rheumatoid arthritis
     Dosage: RESUMPTION OF ORENCIA ADMINISTRATION AFTER 21.2 MONTHS OF DRUG INTERRUPT
     Route: 041
  2. SULFASALAZINE [Concomitant]
     Active Substance: SULFASALAZINE
     Indication: Rheumatoid arthritis

REACTIONS (4)
  - Postoperative wound infection [Recovered/Resolved]
  - Lumbar vertebral fracture [Unknown]
  - Myelopathy [Unknown]
  - Fall [Unknown]
